FAERS Safety Report 25897906 (Version 1)
Quarter: 2025Q4

REPORT INFORMATION
  Report Type: Spontaneous
  Country: EU (occurrence: EU)
  Receive Date: 20251008
  Receipt Date: 20251008
  Transmission Date: 20260117
  Serious: Yes (Hospitalization)
  Sender: NOVARTIS
  Company Number: None

PATIENT
  Age: 44 Year
  Sex: Female

DRUGS (1)
  1. PIQRAY [Suspect]
     Active Substance: ALPELISIB
     Indication: Product used for unknown indication
     Dosage: UNK
     Route: 065

REACTIONS (7)
  - Ocular hyperaemia [Unknown]
  - Vomiting [Unknown]
  - Paraesthesia [Unknown]
  - Rash [Unknown]
  - Nausea [Unknown]
  - Neutropenia [Unknown]
  - Feeling cold [Unknown]
